FAERS Safety Report 7218476-3 (Version None)
Quarter: 2011Q1

REPORT INFORMATION
  Report Type: 
  Country: None (occurrence: None)
  Receive Date: 20110110
  Receipt Date: 20100202
  Transmission Date: 20110831
  Serious: Yes (Other)
  Sender: FDA-Public Use
  Company Number: ES-JNJFOC-20100201654

PATIENT
  Age: 39 Year
  Sex: Female

DRUGS (9)
  1. ABCIXIMAB [Suspect]
     Indication: CORONARY ARTERY THROMBOSIS
  2. ASPIRIN [Concomitant]
  3. ASPIRIN [Concomitant]
  4. CLOPIDOGREL [Concomitant]
  5. ADENOSINE [Concomitant]
     Indication: CORONARY ARTERY THROMBOSIS
     Route: 022
  6. ASPIRIN [Concomitant]
     Indication: ACUTE MYOCARDIAL INFARCTION
  7. HEPARIN [Concomitant]
     Indication: ACUTE MYOCARDIAL INFARCTION
  8. CLOPIDOGREL [Concomitant]
     Indication: ACUTE MYOCARDIAL INFARCTION
  9. CLOPIDOGREL [Concomitant]

REACTIONS (2)
  - PREMATURE RUPTURE OF MEMBRANES [None]
  - DRUG EXPOSURE DURING PREGNANCY [None]
